FAERS Safety Report 20819892 (Version 1)
Quarter: 2022Q2

REPORT INFORMATION
  Report Type: Spontaneous
  Country: US (occurrence: US)
  Receive Date: 20220512
  Receipt Date: 20220512
  Transmission Date: 20220721
  Serious: No
  Sender: FDA-Public Use
  Company Number: US-PFIZER INC-202200177289

PATIENT
  Age: 60 Year
  Sex: Female

DRUGS (12)
  1. XELJANZ [Suspect]
     Active Substance: TOFACITINIB CITRATE
     Dosage: 5 MG, 2X/DAY (5 MG ORAL TWICE DAILY)
     Route: 048
     Dates: start: 20210429
  2. DOXYCYCLINE [Concomitant]
     Active Substance: DOXYCYCLINE
     Dosage: UNK
  3. VITAMIN D3 [Concomitant]
     Active Substance: CHOLECALCIFEROL
     Dosage: UNK
  4. OSTEO BI-FLEX EASE [Concomitant]
     Dosage: UNK
  5. LYRICA [Concomitant]
     Active Substance: PREGABALIN
     Dosage: UNK
  6. TRESIBA [Concomitant]
     Active Substance: INSULIN DEGLUDEC
     Dosage: UNK
  7. NOVOLOG [Concomitant]
     Active Substance: INSULIN ASPART
     Dosage: UNK
  8. BUPROPION HYDROCHLORIDE XL [Concomitant]
     Active Substance: BUPROPION HYDROCHLORIDE
     Dosage: UNK
  9. BIOTIN [Concomitant]
     Active Substance: BIOTIN
     Dosage: UNK
  10. TURMERIC + [Concomitant]
     Dosage: UNK
  11. LUTEIN [Concomitant]
     Active Substance: LUTEIN
     Dosage: UNK
  12. NAILS, HAIR + SKIN [Concomitant]
     Dosage: UNK

REACTIONS (1)
  - Musculoskeletal stiffness [Not Recovered/Not Resolved]

NARRATIVE: CASE EVENT DATE: 20220101
